FAERS Safety Report 7358243-3 (Version None)
Quarter: 2011Q1

REPORT INFORMATION
  Report Type: 
  Country: None (occurrence: None)
  Receive Date: 20110317
  Receipt Date: 20110308
  Transmission Date: 20110831
  Serious: Yes (Other)
  Sender: FDA-Public Use
  Company Number: US-SANOFI-AVENTIS-2011SA014893

PATIENT
  Sex: Female

DRUGS (3)
  1. PLAVIX [Suspect]
     Route: 065
  2. PLAVIX [Suspect]
     Route: 065
  3. PLAVIX [Suspect]
     Route: 065

REACTIONS (5)
  - HIATUS HERNIA [None]
  - DEEP VEIN THROMBOSIS [None]
  - PULMONARY EMBOLISM [None]
  - UNEVALUABLE EVENT [None]
  - DRUG DOSE OMISSION [None]
